FAERS Safety Report 16544126 (Version 1)
Quarter: 2019Q3

REPORT INFORMATION
  Report Type: Spontaneous
  Country: US (occurrence: US)
  Receive Date: 20190709
  Receipt Date: 20190709
  Transmission Date: 20191004
  Serious: Yes (Hospitalization)
  Sender: FDA-Public Use
  Company Number: US-AGG-05-2018-0829

PATIENT
  Age: 79 Year
  Sex: Male
  Weight: 85 kg

DRUGS (10)
  1. APIXABAN [Concomitant]
     Active Substance: APIXABAN
  2. CARVEDILOL. [Concomitant]
     Active Substance: CARVEDILOL
     Dosage: CARVEDILOL DAILY HOME MEDICATION
  3. AGGRASTAT [Suspect]
     Active Substance: TIROFIBAN HYDROCHLORIDE
     Indication: ANTIPLATELET THERAPY
     Dosage: 0.15 MCG/KG/MIN FOR 3 HOURS
     Route: 041
     Dates: start: 20170808, end: 20170808
  4. HEPARIN [Concomitant]
     Active Substance: HEPARIN SODIUM
     Dosage: INTRAVENOUS UNFRACTIONATED HEPARIN DRIP AT 12 UNITS/KG/HOUR
  5. ASPIRIN. [Concomitant]
     Active Substance: ASPIRIN
     Dosage: ASIPIRIN DAILY HOME MEDICATION
  6. FUROSEMIDE. [Concomitant]
     Active Substance: FUROSEMIDE
  7. LOSARTAN. [Concomitant]
     Active Substance: LOSARTAN
     Dosage: LOSARTAN DAILY HOME MEDICATION
  8. AGGRASTAT [Suspect]
     Active Substance: TIROFIBAN HYDROCHLORIDE
     Indication: ANTIPLATELET THERAPY
     Dosage: 2.125 MG IN 42.5 ML (5MG/100ML)
     Route: 040
     Dates: start: 20170808, end: 20170808
  9. ASPIRIN. [Concomitant]
     Active Substance: ASPIRIN
  10. CLOPIDOGREL [Concomitant]
     Active Substance: CLOPIDOGREL BISULFATE
     Route: 048

REACTIONS (1)
  - Thrombocytopenia [Recovering/Resolving]

NARRATIVE: CASE EVENT DATE: 20170808
